FAERS Safety Report 5016217-1 (Version None)
Quarter: 2006Q2

REPORT INFORMATION
  Report Type: 
  Country: None (occurrence: None)
  Receive Date: 20060414
  Receipt Date: 20060124
  Transmission Date: 20061013
  Serious: No
  Sender: FDA-Public Use
  Company Number: 2006SP000408

PATIENT
  Age: 57 Year
  Sex: Female
  Weight: 47.6277 kg

DRUGS (21)
  1. LUNESTA [Suspect]
     Indication: INSOMNIA
     Dosage: 2MG; ORAL
     Route: 048
     Dates: start: 20060123
  2. PREVACID [Concomitant]
  3. AMOXICILLIN W/CLAVULANATE POTASSIUM [Concomitant]
  4. RESTASIS [Concomitant]
  5. PLAQUINOL TAB [Concomitant]
  6. TOBREX [Concomitant]
  7. OTHER VITAMIN PRODUCTS, COMBINATIONS [Concomitant]
  8. CALCIUM GLUCONATE [Concomitant]
  9. ESTRADIOL [Concomitant]
  10. LEVSIN [Concomitant]
  11. XANAX [Concomitant]
  12. KLONOPIN [Concomitant]
  13. PROMETHAZINE [Concomitant]
  14. TRICOR [Concomitant]
  15. NORFLEX [Concomitant]
  16. LIDODERM [Concomitant]
  17. ULTRACET [Concomitant]
  18. ALBUTEROL [Concomitant]
  19. REPAGLINIDE [Concomitant]
  20. HYDROXYZINE [Concomitant]
  21. NIFEREX [Concomitant]

REACTIONS (5)
  - ASTHENIA [None]
  - INSOMNIA [None]
  - NAUSEA [None]
  - VOMITING [None]
  - WEIGHT DECREASED [None]
